FAERS Safety Report 7259109-X (Version None)
Quarter: 2011Q1

REPORT INFORMATION
  Report Type: 
  Country: None (occurrence: None)
  Receive Date: 20110129
  Receipt Date: 20100812
  Transmission Date: 20110831
  Serious: No
  Sender: FDA-Public Use
  Company Number: US-ABBOTT-10P-163-0663814-00

PATIENT
  Age: 55 Year
  Sex: Female

DRUGS (10)
  1. CLONAZEPAM [Concomitant]
     Indication: INSOMNIA
     Dosage: AT BED TIME
  2. MULTIVITAMIN WITH FLAX SEED OIL [Concomitant]
     Indication: ARTHROPATHY
  3. MOBIC [Concomitant]
     Indication: PAIN
     Route: 048
  4. HUMIRA [Suspect]
     Indication: PSORIATIC ARTHROPATHY
     Dates: start: 20100808
  5. PREDNISONE [Concomitant]
     Indication: ARTHRITIS
     Route: 048
  6. HYDROCHLOROTHIAZIDE [Concomitant]
     Indication: HYPERTENSION
  7. LYRICA [Concomitant]
     Indication: CENTRAL NERVOUS SYSTEM INFLAMMATION
     Route: 048
  8. CLONAZEPAM [Concomitant]
     Indication: ANXIETY
  9. VITAMIN TAB [Concomitant]
     Indication: ARTHROPATHY
  10. POTASSIUM [Concomitant]
     Indication: ARTHROPATHY

REACTIONS (2)
  - INJECTION SITE HAEMORRHAGE [None]
  - INJECTION SITE HAEMATOMA [None]
